FAERS Safety Report 10011278 (Version 3)
Quarter: 2014Q2

REPORT INFORMATION
  Report Type: Spontaneous
  Country: CA (occurrence: None)
  Receive Date: 20140311
  Receipt Date: 20140417
  Transmission Date: 20141212
  Serious: Yes (Hospitalization, Other)
  Sender: FDA-Public Use
  Company Number: COR_00032_2014

PATIENT
  Age: 56 Year
  Sex: Male

DRUGS (11)
  1. LOMUSTINE [Suspect]
     Indication: GLIOBLASTOMA
     Dosage: DF
     Dates: start: 201308
  2. KEPPRA [Concomitant]
  3. FOSAMAX  (UNKNOWN) [Concomitant]
  4. FRISIUM (UNKNOWN) [Concomitant]
  5. VITAMIN D/00107901/(UNKNOWN) [Concomitant]
  6. ASA (UNKNOWN) [Concomitant]
  7. DECADRON/0016001 [Concomitant]
  8. NYSTATIN [Concomitant]
  9. CALBOLCAL [Concomitant]
  10. ETOPOSIDE (ETOPOSIDE) [Suspect]
     Indication: GLIOBLASTOMA
     Dosage: DF
     Dates: end: 201402
  11. AVASTIN [Suspect]

REACTIONS (7)
  - Malignant neoplasm progression [None]
  - Drug ineffective [None]
  - Glioblastoma [None]
  - Oropharyngeal pain [None]
  - Pyrexia [None]
  - Convulsion [None]
  - Body temperature decreased [None]
